FAERS Safety Report 6237763-9 (Version None)
Quarter: 2009Q2

REPORT INFORMATION
  Report Type: 
  Country: None (occurrence: None)
  Receive Date: 20090618
  Receipt Date: 20090603
  Transmission Date: 20091009
  Serious: Yes (Hospitalization)
  Sender: FDA-Public Use
  Company Number: 2009-189978-NL

PATIENT
  Age: 20 Year
  Sex: Female

DRUGS (1)
  1. NUVARING [Suspect]
     Dates: start: 20080115, end: 20081222

REACTIONS (3)
  - DIPLOPIA [None]
  - EYE PAIN [None]
  - INTRACRANIAL VENOUS SINUS THROMBOSIS [None]
